FAERS Safety Report 4721057-4 (Version None)
Quarter: 2005Q3

REPORT INFORMATION
  Report Type: 
  Country: None (occurrence: None)
  Receive Date: 20050719
  Receipt Date: 20040921
  Transmission Date: 20060218
  Serious: Yes (Death)
  Sender: FDA-Public Use
  Company Number: 2004236130GB

PATIENT
  Age: 67 Year
  Sex: Female

DRUGS (2)
  1. CELEBREX [Suspect]
     Dosage: 200 MG, QD, ORAL
     Route: 048
     Dates: start: 20040510
  2. CARDURA [Concomitant]

REACTIONS (3)
  - DEATH [None]
  - NAUSEA [None]
  - VOMITING [None]
